FAERS Safety Report 6659542-0 (Version None)
Quarter: 2010Q1

REPORT INFORMATION
  Report Type: 
  Country: None (occurrence: None)
  Receive Date: 20100330
  Receipt Date: 20100326
  Transmission Date: 20100710
  Serious: Yes (Hospitalization)
  Sender: FDA-Public Use
  Company Number: DE-WYE-G05841010

PATIENT
  Sex: Female
  Weight: 70 kg

DRUGS (11)
  1. TYGACIL [Suspect]
     Indication: ABDOMINAL INFECTION
     Route: 042
     Dates: start: 20100310, end: 20100322
  2. TYGACIL [Suspect]
     Dosage: INITIAL DOSE 100 MG
     Route: 042
     Dates: start: 20100310, end: 20100310
  3. CYCLOKAPRON [Concomitant]
  4. EBRANTIL [Concomitant]
  5. AMBISOME [Concomitant]
     Route: 065
     Dates: start: 20100315, end: 20100321
  6. METOCLOPRAMIDE [Concomitant]
  7. ACTRAPID HUMAN [Concomitant]
  8. CERNEVIT-12 [Concomitant]
  9. PIPERACILLIN AND TAZOBACTAM [Concomitant]
     Route: 042
     Dates: start: 20100303, end: 20100310
  10. KONAKION [Concomitant]
  11. LACTULOSE [Concomitant]

REACTIONS (2)
  - ASCITES [None]
  - DRUG INEFFECTIVE [None]
